FAERS Safety Report 7820335-X (Version None)
Quarter: 2011Q4

REPORT INFORMATION
  Report Type: 
  Country: None (occurrence: None)
  Receive Date: 20111018
  Receipt Date: 20111014
  Transmission Date: 20120403
  Serious: Yes (Hospitalization)
  Sender: FDA-Public Use
  Company Number: DE-ROCHE-743395

PATIENT
  Sex: Female
  Weight: 87 kg

DRUGS (5)
  1. EPIRUBICIN HYDROCHLORIDE [Suspect]
     Indication: BREAST CANCER
     Dosage: LAST DOSE PRIOR TO SAE 02 AUGUST 2010.
     Route: 042
     Dates: start: 20100531, end: 20100802
  2. CYCLOPHOSPHAMIDE [Suspect]
     Indication: BREAST CANCER
     Dosage: LAST DOSE PRIOR TO SAE 02 AUGUST 2010.
     Route: 042
     Dates: start: 20100531, end: 20100802
  3. HERCEPTIN [Suspect]
     Indication: BREAST CANCER
     Dosage: LOADING DOSE.
     Route: 042
  4. HERCEPTIN [Suspect]
     Dosage: MAINTENANCE DOSES.  LAST DOSE PRIOR TO SAE: 25 OCTOBER 2010.
     Route: 042
  5. DOCETAXEL [Suspect]
     Indication: BREAST CANCER
     Dosage: LAST DOSE PRIOR TO SAE 25 OCTOBER 2010.
     Route: 042

REACTIONS (1)
  - PNEUMONIA [None]
